FAERS Safety Report 6704371-2 (Version None)
Quarter: 2010Q2

REPORT INFORMATION
  Report Type: 
  Country: None (occurrence: None)
  Receive Date: 20100430
  Receipt Date: 20100419
  Transmission Date: 20101027
  Serious: Yes (Other)
  Sender: FDA-Public Use
  Company Number: US-JNJFOC-20100406118

PATIENT
  Sex: Male
  Weight: 138.35 kg

DRUGS (30)
  1. REMICADE [Suspect]
     Indication: RHEUMATOID ARTHRITIS
     Dosage: 3 INFUSIONS ON UNSPECIFIED DATES
     Route: 042
  2. REMICADE [Suspect]
     Dosage: EVERY 4-5 WEEKS
     Route: 042
  3. REMICADE [Suspect]
     Route: 042
  4. LOVAZA [Concomitant]
  5. TRICOR [Concomitant]
  6. LIPITOR [Concomitant]
  7. RYTHMOL [Concomitant]
  8. COREG [Concomitant]
  9. IMDUR [Concomitant]
  10. IMURAN [Concomitant]
  11. WARFARIN SODIUM [Concomitant]
  12. LEVICIN [Concomitant]
  13. PRILOSEC [Concomitant]
  14. CLONOPIN [Concomitant]
  15. VISTARIL [Concomitant]
  16. WELLBUTRIN [Concomitant]
  17. CYMBALTA [Concomitant]
  18. RISPERDAL [Concomitant]
  19. ZENPEP [Concomitant]
  20. DESONIDE [Concomitant]
  21. CLOBETASOL PROPIONATE [Concomitant]
  22. POTASSIUM [Concomitant]
  23. FOLIC ACID [Concomitant]
  24. FUROSEMIDE [Concomitant]
  25. FERROUS SULFATE TAB [Concomitant]
  26. VICODIN [Concomitant]
  27. DARVOCET [Concomitant]
  28. LAMICTAL [Concomitant]
  29. ULTRAM [Concomitant]
  30. ZETIA [Concomitant]

REACTIONS (4)
  - ABDOMINAL PAIN UPPER [None]
  - BILE DUCT OBSTRUCTION [None]
  - HEADACHE [None]
  - INTESTINAL STENOSIS [None]
